FAERS Safety Report 23872146 (Version 1)
Quarter: 2024Q2

REPORT INFORMATION
  Report Type: Spontaneous
  Country: US (occurrence: US)
  Receive Date: 20240520
  Receipt Date: 20240520
  Transmission Date: 20240716
  Serious: Yes (Hospitalization)
  Sender: FDA-Public Use
  Company Number: US-IMMUNOGEN, INC.-US-IMGN-24-00413

PATIENT
  Age: 85 Year
  Sex: Female

DRUGS (1)
  1. ELAHERE [Suspect]
     Active Substance: MIRVETUXIMAB SORAVTANSINE-GYNX
     Indication: Ovarian cancer metastatic
     Dosage: UNK, UNK
     Route: 042
     Dates: start: 20240402

REACTIONS (1)
  - Infusion site cellulitis [Not Recovered/Not Resolved]

NARRATIVE: CASE EVENT DATE: 20240403
